FAERS Safety Report 13038730 (Version 4)
Quarter: 2017Q1

REPORT INFORMATION
  Report Type: Report from Study
  Country: None (occurrence: US)
  Receive Date: 20161219
  Receipt Date: 20170316
  Transmission Date: 20170428
  Serious: Yes (Hospitalization)
  Sender: FDA-Public Use
  Company Number: US-ABBVIE-16K-163-1808138-00

PATIENT
  Age: 24 Year
  Sex: Male
  Weight: 76.27 kg

DRUGS (3)
  1. AZATHIOPRINE. [Concomitant]
     Active Substance: AZATHIOPRINE
     Indication: CROHN^S DISEASE
  2. LIALDA [Concomitant]
     Active Substance: MESALAMINE
     Indication: CROHN^S DISEASE
  3. HUMIRA [Suspect]
     Active Substance: ADALIMUMAB
     Indication: CROHN^S DISEASE
     Route: 058
     Dates: start: 20160812

REACTIONS (8)
  - Intestinal obstruction [Recovering/Resolving]
  - Gastrointestinal sounds abnormal [Recovered/Resolved]
  - Hypophagia [Recovered/Resolved]
  - Hypophagia [Recovered/Resolved]
  - Ileal stenosis [Not Recovered/Not Resolved]
  - Ileal stenosis [Recovering/Resolving]
  - Intestinal obstruction [Recovered/Resolved]
  - Gastrointestinal sounds abnormal [Recovered/Resolved]

NARRATIVE: CASE EVENT DATE: 201608
